FAERS Safety Report 15279960 (Version 1)
Quarter: 2018Q3

REPORT INFORMATION
  Report Type: Spontaneous
  Country: US (occurrence: US)
  Receive Date: 20180730
  Receipt Date: 20180730
  Transmission Date: 20181010
  Serious: Yes (Hospitalization, Other)
  Sender: FDA-Public Use
  Company Number: None

PATIENT

DRUGS (1)
  1. GAMUNEX?C [Suspect]
     Active Substance: HUMAN IMMUNOGLOBULIN G
     Indication: PRODUCT USED FOR UNKNOWN INDICATION

REACTIONS (13)
  - Infusion related reaction [None]
  - Oropharyngeal discomfort [None]
  - Drug hypersensitivity [None]
  - Throat irritation [None]
  - Pruritus [None]
  - Anxiety [None]
  - Headache [None]
  - Erythema [None]
  - Urticaria [None]
  - Dysphonia [None]
  - Product quality issue [None]
  - Wheezing [None]
  - Chest discomfort [None]
